FAERS Safety Report 24608179 (Version 1)
Quarter: 2024Q4

REPORT INFORMATION
  Report Type: Spontaneous
  Country: US (occurrence: None)
  Receive Date: 20241111
  Receipt Date: 20241111
  Transmission Date: 20250115
  Serious: Yes (Other)
  Sender: Public
  Company Number: None

PATIENT
  Age: 56 Year
  Sex: Female
  Weight: 73.35 kg

DRUGS (1)
  1. REVLIMID [Suspect]
     Active Substance: LENALIDOMIDE
     Indication: Plasma cell myeloma
     Dosage: FREQUENCY : DAILY;?
     Route: 048

REACTIONS (5)
  - Muscular weakness [None]
  - Gait disturbance [None]
  - Renal impairment [None]
  - Neuropathy peripheral [None]
  - Dysaesthesia [None]

NARRATIVE: CASE EVENT DATE: 20240909
